FAERS Safety Report 25618914 (Version 1)
Quarter: 2025Q3

REPORT INFORMATION
  Report Type: Report from Study
  Country: US (occurrence: US)
  Receive Date: 20250729
  Receipt Date: 20250729
  Transmission Date: 20251020
  Serious: Yes (Other)
  Sender: ALEXION PHARMACEUTICALS
  Company Number: US-ASTRAZENECA-202507USA021966US

PATIENT
  Age: 10 Year
  Sex: Male

DRUGS (1)
  1. STRENSIQ [Suspect]
     Active Substance: ASFOTASE ALFA
     Indication: Phosphorus metabolism disorder
     Dosage: 48 MILLIGRAM, TIW
     Route: 065

REACTIONS (7)
  - Blood pressure decreased [Unknown]
  - Peripheral coldness [Unknown]
  - Blood glucose decreased [Unknown]
  - Blood bilirubin decreased [Unknown]
  - Anion gap increased [Unknown]
  - Blood creatinine decreased [Unknown]
  - Vitamin D decreased [Unknown]

NARRATIVE: CASE EVENT DATE: 20250717
